FAERS Safety Report 21560186 (Version 2)
Quarter: 2022Q4

REPORT INFORMATION
  Report Type: Report from Study
  Country: US (occurrence: US)
  Receive Date: 20221107
  Receipt Date: 20221111
  Transmission Date: 20230112
  Serious: Yes (Other)
  Sender: FDA-Public Use
  Company Number: US-MYLANLABS-2022M1120984

PATIENT
  Age: 68 Year
  Sex: Female

DRUGS (6)
  1. NEURONTIN [Suspect]
     Active Substance: GABAPENTIN
     Indication: Product used for unknown indication
     Dosage: UNK
     Route: 065
  2. TREPROSTINIL SODIUM [Suspect]
     Active Substance: TREPROSTINIL SODIUM
     Indication: Pulmonary arterial hypertension
     Dosage: 24 MICROGRAM, QID ( (4 BREATHS)
     Dates: start: 20220605
  3. TREPROSTINIL SODIUM [Suspect]
     Active Substance: TREPROSTINIL SODIUM
     Dosage: 36 MICROGRAM, QID (6 BREATHS) STOP ??-???-2022
     Dates: start: 2022
  4. TREPROSTINIL SODIUM [Suspect]
     Active Substance: TREPROSTINIL SODIUM
     Dosage: 48 MICROGRAM, QID  (8 BREATHS)
     Dates: start: 2022
  5. TREPROSTINIL SODIUM [Suspect]
     Active Substance: TREPROSTINIL SODIUM
     Dosage: 72 MICROGRAM, QID
     Dates: start: 2022
  6. TESSALON [Suspect]
     Active Substance: BENZONATATE
     Indication: Product used for unknown indication
     Dosage: UNK
     Route: 065

REACTIONS (8)
  - Hypoxia [Unknown]
  - Cough [Not Recovered/Not Resolved]
  - Seasonal allergy [Unknown]
  - Lung disorder [Unknown]
  - Headache [Unknown]
  - Rales [Unknown]
  - Clubbing [Unknown]
  - Therapy partial responder [Unknown]

NARRATIVE: CASE EVENT DATE: 20220501
